FAERS Safety Report 25894159 (Version 3)
Quarter: 2025Q4

REPORT INFORMATION
  Report Type: Report from Study
  Country: US (occurrence: US)
  Receive Date: 20251008
  Receipt Date: 20251224
  Transmission Date: 20260118
  Serious: No
  Sender: AVERITAS
  Company Number: US-GRUNENTHAL-2025-123454

PATIENT
  Sex: Female

DRUGS (1)
  1. QUTENZA [Suspect]
     Active Substance: CAPSAICIN
     Indication: Diabetic neuropathy
     Dosage: 1 DOSAGE FORM, ONCE
     Route: 061
     Dates: start: 20250930, end: 20250930

REACTIONS (3)
  - Paraesthesia [Unknown]
  - Pain in extremity [Recovered/Resolved]
  - Application site discomfort [Unknown]

NARRATIVE: CASE EVENT DATE: 20250101
